FAERS Safety Report 22836046 (Version 3)
Quarter: 2024Q2

REPORT INFORMATION
  Report Type: Report from Study
  Country: US (occurrence: US)
  Receive Date: 20230818
  Receipt Date: 20240401
  Transmission Date: 20240716
  Serious: Yes (Other)
  Sender: FDA-Public Use
  Company Number: US-JAZZ PHARMACEUTICALS-2023-US-012711

PATIENT
  Sex: Male
  Weight: 39.4 kg

DRUGS (8)
  1. EPIDIOLEX [Suspect]
     Active Substance: CANNABIDIOL
     Indication: Product used for unknown indication
     Dosage: 5 MILLILITER, BID
     Route: 048
  2. EPIDIOLEX [Suspect]
     Active Substance: CANNABIDIOL
     Dosage: 5 MILLILITER, BID
     Route: 048
  3. EPIDIOLEX [Suspect]
     Active Substance: CANNABIDIOL
     Dosage: 5 MILLILITER, BID
     Route: 048
  4. BRIVIACT [Concomitant]
     Active Substance: BRIVARACETAM
     Dosage: UNK
  5. ONFI [Concomitant]
     Active Substance: CLOBAZAM
     Dosage: UNK
  6. TRILEPTAL [Concomitant]
     Active Substance: OXCARBAZEPINE
     Dosage: UNK
  7. VIMPAT [Concomitant]
     Active Substance: LACOSAMIDE
     Dosage: UNK
  8. DIAZEPAM [Concomitant]
     Active Substance: DIAZEPAM

REACTIONS (3)
  - Seizure [Unknown]
  - Drug ineffective [Unknown]
  - Intentional product use issue [Unknown]
